FAERS Safety Report 25238924 (Version 2)
Quarter: 2025Q2

REPORT INFORMATION
  Report Type: Spontaneous
  Country: US (occurrence: US)
  Receive Date: 20250425
  Receipt Date: 20250513
  Transmission Date: 20250717
  Serious: No
  Sender: KARYOPHARM THERAPEUTICS
  Company Number: US-KARYOPHARM-2025KPT100168

PATIENT

DRUGS (16)
  1. SELINEXOR [Suspect]
     Active Substance: SELINEXOR
     Indication: Plasma cell myeloma
     Route: 048
     Dates: start: 20250410
  2. BORTEZOMIB [Concomitant]
     Active Substance: BORTEZOMIB
  3. EPINEPHRINE [Concomitant]
     Active Substance: EPINEPHRINE
  4. PROCHLORPERAZINE [Concomitant]
     Active Substance: PROCHLORPERAZINE
  5. ACYCLOVIR [Concomitant]
     Active Substance: ACYCLOVIR
  6. CLOBETASOL [Concomitant]
     Active Substance: CLOBETASOL
  7. DEXAMETHASONE [Concomitant]
     Active Substance: DEXAMETHASONE
  8. LIDOCAINE AND PRILOCAINE [Concomitant]
     Active Substance: LIDOCAINE\PRILOCAINE
  9. PANTOPRAZOLE [Concomitant]
     Active Substance: PANTOPRAZOLE
  10. TRAZODONE [Concomitant]
     Active Substance: TRAZODONE HYDROCHLORIDE
  11. TRIAMCINOLONE ACETONIDE [Concomitant]
     Active Substance: TRIAMCINOLONE ACETONIDE
  12. BIMATOPROST [Concomitant]
     Active Substance: BIMATOPROST
  13. CITALOPRAM HYDROBROMIDE [Concomitant]
     Active Substance: CITALOPRAM HYDROBROMIDE
  14. EZETIMIBE [Concomitant]
     Active Substance: EZETIMIBE
  15. TIMOLOL MALEATE [Concomitant]
     Active Substance: TIMOLOL MALEATE
  16. ACETAMINOPHEN [Concomitant]
     Active Substance: ACETAMINOPHEN

REACTIONS (5)
  - Hypersomnia [Unknown]
  - Balance disorder [Not Recovered/Not Resolved]
  - Taste disorder [Unknown]
  - Decreased appetite [Unknown]
  - Nausea [Not Recovered/Not Resolved]

NARRATIVE: CASE EVENT DATE: 20250401
